FAERS Safety Report 8365509-7 (Version None)
Quarter: 2012Q2

REPORT INFORMATION
  Report Type: 
  Country: None (occurrence: None)
  Receive Date: 20120516
  Receipt Date: 20120508
  Transmission Date: 20120825
  Serious: Yes (Hospitalization)
  Sender: FDA-Public Use
  Company Number: IE-BAXTER-2012BH005589

PATIENT
  Sex: Male
  Weight: 95.5 kg

DRUGS (3)
  1. PIPERACILLIN AND TAZOBACTAM [Suspect]
     Indication: OSTEOMYELITIS
     Route: 042
     Dates: start: 20120131, end: 20120222
  2. SODIUM CHLORIDE [Suspect]
     Route: 042
     Dates: start: 20120131, end: 20120222
  3. AMOXICILLIN AND CLAVULANATE POTASSIUM [Suspect]
     Route: 048

REACTIONS (1)
  - HEPATIC FAILURE [None]
